FAERS Safety Report 10155724 (Version 2)
Quarter: 2014Q2

REPORT INFORMATION
  Report Type: Report from Study
  Country: US (occurrence: US)
  Receive Date: 20140506
  Receipt Date: 20140506
  Transmission Date: 20141212
  Serious: Yes (Hospitalization, Other)
  Sender: FDA-Public Use
  Company Number: US-ABBVIE-14P-163-1218430-00

PATIENT
  Age: 52 Year
  Sex: Male

DRUGS (2)
  1. HUMIRA [Suspect]
     Indication: COLITIS ULCERATIVE
     Dates: start: 20140325
  2. HUMIRA [Suspect]

REACTIONS (4)
  - Colitis ulcerative [Recovering/Resolving]
  - Clostridium difficile infection [Recovering/Resolving]
  - Colectomy [Recovering/Resolving]
  - Proctalgia [Unknown]
